FAERS Safety Report 13933321 (Version 6)
Quarter: 2017Q4

REPORT INFORMATION
  Report Type: Spontaneous
  Country: JP (occurrence: JP)
  Receive Date: 20170904
  Receipt Date: 20171116
  Transmission Date: 20180320
  Serious: Yes (Hospitalization)
  Sender: FDA-Public Use
  Company Number: JP-HORIZON-BUP-0069-2017

PATIENT
  Age: 11 Year
  Sex: Male
  Weight: 28.3 kg

DRUGS (10)
  1. KATIV-N [Concomitant]
     Indication: VITAMIN K DEFICIENCY
     Route: 048
     Dates: start: 20080116
  2. CALCIUM LACTATE [Concomitant]
     Active Substance: CALCIUM LACTATE
     Indication: VITAMIN D DEFICIENCY
     Route: 048
     Dates: start: 20130712
  3. PHENOBAL [Concomitant]
     Active Substance: PHENOBARBITAL
     Indication: CHOLESTASIS
     Route: 048
     Dates: start: 20080116
  4. ONEALFA [Concomitant]
     Active Substance: ALFACALCIDOL
     Indication: VITAMIN D DEFICIENCY
     Route: 048
     Dates: start: 20161116
  5. CHOCOLA [Concomitant]
     Indication: VITAMIN A DEFICIENCY
     Route: 048
     Dates: start: 20170104
  6. HUMATROPE [Concomitant]
     Active Substance: SOMATROPIN
     Indication: DWARFISM
     Route: 058
     Dates: start: 20090804
  7. RIVOTRIL [Concomitant]
     Active Substance: CLONAZEPAM
     Indication: EPILEPSY
     Route: 048
     Dates: start: 20160915
  8. JUVELA [Concomitant]
     Active Substance: .ALPHA.-TOCOPHEROL\RETINOL
     Indication: VITAMIN E DEFICIENCY
     Route: 048
     Dates: start: 20080116
  9. URSODEOXYCHOLIC ACID [Concomitant]
     Active Substance: URSODIOL
     Indication: CHOLESTASIS
     Route: 048
     Dates: start: 20170201
  10. BUPHENYL [Suspect]
     Active Substance: SODIUM PHENYLBUTYRATE
     Indication: PROGRESSIVE FAMILIAL INTRAHEPATIC CHOLESTASIS
     Dosage: 12600 MG DAILY
     Route: 048
     Dates: start: 20170824, end: 20170928

REACTIONS (2)
  - Off label use [Unknown]
  - Diarrhoea [Not Recovered/Not Resolved]

NARRATIVE: CASE EVENT DATE: 20170830
